APPROVED DRUG PRODUCT: CLOZAPINE
Active Ingredient: CLOZAPINE
Strength: 200MG
Dosage Form/Route: TABLET;ORAL
Application: A203807 | Product #004
Applicant: DR REDDYS LABORATORIES SA
Approved: Aug 22, 2017 | RLD: No | RS: No | Type: DISCN